FAERS Safety Report 8398287-6 (Version None)
Quarter: 2012Q2

REPORT INFORMATION
  Report Type: 
  Country: None (occurrence: None)
  Receive Date: 20120531
  Receipt Date: 20120525
  Transmission Date: 20120825
  Serious: Yes (Other)
  Sender: FDA-Public Use
  Company Number: DE-B.I. PHARMACEUTICALS,INC./RIDGEFIELD-2012-DE-01140DE

PATIENT
  Age: 84 Year
  Sex: Male
  Weight: 80 kg

DRUGS (3)
  1. ATACAND [Concomitant]
     Indication: BLOOD PRESSURE
     Dosage: 4 MG
  2. AGGRENOX [Suspect]
     Indication: HYPOPERFUSION
     Dates: start: 20080101, end: 20120101
  3. ASPIRIN [Concomitant]
     Dosage: 50 MG

REACTIONS (2)
  - BLEEDING TIME PROLONGED [None]
  - MACULAR DEGENERATION [None]
